FAERS Safety Report 5936157-0 (Version None)
Quarter: 2008Q4

REPORT INFORMATION
  Report Type: 
  Country: None (occurrence: None)
  Receive Date: 20081030
  Receipt Date: 20081014
  Transmission Date: 20090506
  Serious: Yes (Hospitalization)
  Sender: FDA-Public Use
  Company Number: CA-PFIZER INC-2008088067

PATIENT
  Sex: Female
  Weight: 59 kg

DRUGS (6)
  1. SU-011,248 [Suspect]
     Indication: BREAST CANCER
     Dosage: DAILY DOSE:37.5MG-FREQ:DAILY
     Route: 048
     Dates: start: 20080917, end: 20081008
  2. XELODA [Suspect]
     Indication: BREAST CANCER
     Route: 048
     Dates: start: 20080917, end: 20081001
  3. REGLAN [Concomitant]
     Indication: NAUSEA
     Dates: start: 20081001, end: 20081008
  4. STEMETIL SUPPOSITORY [Concomitant]
     Indication: NAUSEA
     Dates: start: 20081008
  5. PAMIDRONATE DISODIUM [Concomitant]
     Indication: METASTASES TO BONE
     Dates: start: 20061101
  6. TYLENOL (CAPLET) [Concomitant]
     Indication: PAIN
     Dates: start: 20080827

REACTIONS (1)
  - SYNCOPE [None]
